FAERS Safety Report 21758839 (Version 1)
Quarter: 2022Q4

REPORT INFORMATION
  Report Type: Spontaneous
  Country: PL (occurrence: None)
  Receive Date: 20221221
  Receipt Date: 20221221
  Transmission Date: 20230113
  Serious: Yes (Other)
  Sender: FDA-Public Use
  Company Number: PL-ROCHE-3245283

PATIENT
  Age: 61 Year
  Sex: Female

DRUGS (1)
  1. ATEZOLIZUMAB [Suspect]
     Active Substance: ATEZOLIZUMAB
     Indication: Lung neoplasm malignant
     Route: 065
     Dates: start: 20191120

REACTIONS (6)
  - Arthralgia [Unknown]
  - Hepatic enzyme increased [Unknown]
  - Skin neoplasm excision [Unknown]
  - Lung disorder [Unknown]
  - Pulmonary mass [Unknown]
  - Melanocytic naevus [Unknown]

NARRATIVE: CASE EVENT DATE: 20210501
